FAERS Safety Report 4375820-2 (Version None)
Quarter: 2004Q2

REPORT INFORMATION
  Report Type: 
  Country: None (occurrence: None)
  Receive Date: 20040607
  Receipt Date: 20040527
  Transmission Date: 20050107
  Serious: Yes (Life-Threatening, Hospitalization)
  Sender: FDA-Public Use
  Company Number: 2004215977GB

PATIENT
  Age: 6 Year
  Sex: Female

DRUGS (2)
  1. GENOTROPIN [Suspect]
     Indication: TURNER'S SYNDROME
     Dosage: SEE IMAGE
     Dates: start: 20010711, end: 20030311
  2. GENOTROPIN [Suspect]
     Indication: TURNER'S SYNDROME
     Dosage: SEE IMAGE
     Dates: start: 20030520

REACTIONS (2)
  - BENIGN MUSCLE NEOPLASM [None]
  - GANGLIONEUROMA [None]
